FAERS Safety Report 24234653 (Version 1)
Quarter: 2024Q3

REPORT INFORMATION
  Report Type: Spontaneous
  Country: FR (occurrence: None)
  Receive Date: 20240821
  Receipt Date: 20240821
  Transmission Date: 20241016
  Serious: Yes (Hospitalization)
  Sender: ASTRAZENECA
  Company Number: 2024A184251

PATIENT
  Age: 85 Year
  Sex: Male

DRUGS (14)
  1. EVUSHELD [Suspect]
     Active Substance: CILGAVIMAB\TIXAGEVIMAB
     Indication: COVID-19 prophylaxis
     Dosage: 150+150MG
     Route: 030
     Dates: start: 20220111, end: 20220111
  2. BACTRIM [Concomitant]
     Active Substance: SULFAMETHOXAZOLE\TRIMETHOPRIM
  3. OBINUTUZUMAB [Concomitant]
     Active Substance: OBINUTUZUMAB
  4. FOLIC ACID [Concomitant]
     Active Substance: FOLIC ACID
  5. IRBESARTAN [Concomitant]
     Active Substance: IRBESARTAN
  6. CHLORAMBUCIL [Concomitant]
     Active Substance: CHLORAMBUCIL
  7. VALACYCLOVIR HYDROCHLORIDE [Concomitant]
     Active Substance: VALACYCLOVIR HYDROCHLORIDE
  8. PIASCLEDINE 300 MG, G?LULE [Concomitant]
  9. ALBUTEROL [Concomitant]
     Active Substance: ALBUTEROL
  10. CHOLECALCIFEROL [Concomitant]
     Active Substance: CHOLECALCIFEROL
  11. SILODOSIN [Concomitant]
     Active Substance: SILODOSIN
  12. FLECAINIDE [Concomitant]
     Active Substance: FLECAINIDE
  13. STRUCTUM [Concomitant]
  14. ASPIRIN [Concomitant]
     Active Substance: ASPIRIN

REACTIONS (2)
  - COVID-19 pneumonia [Not Recovered/Not Resolved]
  - Drug ineffective [Not Recovered/Not Resolved]

NARRATIVE: CASE EVENT DATE: 20220117
